FAERS Safety Report 13655046 (Version 1)
Quarter: 2017Q2

REPORT INFORMATION
  Report Type: Spontaneous
  Country: US (occurrence: US)
  Receive Date: 20170614
  Receipt Date: 20170614
  Transmission Date: 20170830
  Serious: No
  Sender: FDA-Public Use
  Company Number: None

PATIENT
  Age: 83 Year
  Sex: Male

DRUGS (2)
  1. EXJADE [Suspect]
     Active Substance: DEFERASIROX
     Indication: CHRONIC LEUKAEMIA
     Dosage: 250MG 3 TABS TWICE DAILY PO
     Route: 048
     Dates: start: 20170228, end: 20170612
  2. EXJADE [Suspect]
     Active Substance: DEFERASIROX
     Indication: IRON METABOLISM DISORDER
     Dosage: 250MG 3 TABS TWICE DAILY PO
     Route: 048
     Dates: start: 20170228, end: 20170612

REACTIONS (1)
  - Dysphonia [None]

NARRATIVE: CASE EVENT DATE: 20170101
